FAERS Safety Report 8338094-3 (Version None)
Quarter: 2012Q2

REPORT INFORMATION
  Report Type: 
  Country: None (occurrence: None)
  Receive Date: 20120504
  Receipt Date: 20120424
  Transmission Date: 20120825
  Serious: Yes (Hospitalization)
  Sender: FDA-Public Use
  Company Number: IT-TEVA-335413ISR

PATIENT
  Sex: Female

DRUGS (2)
  1. ALPRAZOLAM [Suspect]
     Dosage: 10 MILLIGRAM;
     Route: 048
     Dates: start: 20120423, end: 20120423
  2. WINE [Interacting]

REACTIONS (3)
  - SELF INJURIOUS BEHAVIOUR [None]
  - BRADYKINESIA [None]
  - BRADYPHRENIA [None]
